FAERS Safety Report 6690842-4 (Version None)
Quarter: 2010Q2

REPORT INFORMATION
  Report Type: 
  Country: None (occurrence: None)
  Receive Date: 20100421
  Receipt Date: 20100414
  Transmission Date: 20101027
  Serious: Yes (Hospitalization)
  Sender: FDA-Public Use
  Company Number: US-GILEAD-2010-0028538

PATIENT
  Sex: Male
  Weight: 79.45 kg

DRUGS (16)
  1. LETAIRIS [Suspect]
     Indication: PULMONARY ARTERIAL HYPERTENSION
     Route: 048
  2. REMODULIN [Concomitant]
  3. COUMADIN [Concomitant]
  4. FUROSEMIDE [Concomitant]
  5. RAMIPRIL [Concomitant]
  6. DIGOXIN [Concomitant]
  7. NITROGLYCERIN [Concomitant]
  8. LOVASTATIN [Concomitant]
  9. CLARITIN [Concomitant]
  10. NIACIN [Concomitant]
  11. HYDROCODONE BITARTRATE [Concomitant]
  12. ZANTAC [Concomitant]
  13. MOTRIN IB [Concomitant]
  14. PRILOSEC [Concomitant]
  15. ECOTRIN [Concomitant]
  16. PHENERGAN [Concomitant]

REACTIONS (3)
  - DYSPNOEA [None]
  - OEDEMA [None]
  - PNEUMONIA [None]
